FAERS Safety Report 6842964-2 (Version None)
Quarter: 2010Q3

REPORT INFORMATION
  Report Type: 
  Country: None (occurrence: None)
  Receive Date: 20100714
  Receipt Date: 20070808
  Transmission Date: 20110219
  Serious: No
  Sender: FDA-Public Use
  Company Number: US-PFIZER INC-2007066880

PATIENT
  Sex: Female
  Weight: 63.636 kg

DRUGS (9)
  1. CHANTIX [Suspect]
     Indication: SMOKING CESSATION THERAPY
     Dates: start: 20070701
  2. ACETYLSALICYLIC ACID [Concomitant]
  3. REGLAN [Concomitant]
  4. ZOLOFT [Concomitant]
  5. ATENOLOL [Concomitant]
  6. DYAZIDE [Concomitant]
  7. ZESTRIL [Concomitant]
  8. PRILOSEC [Concomitant]
  9. XANAX [Concomitant]

REACTIONS (1)
  - NAUSEA [None]
